FAERS Safety Report 4737644-3 (Version None)
Quarter: 2005Q3

REPORT INFORMATION
  Report Type: 
  Country: None (occurrence: None)
  Receive Date: 20050809
  Receipt Date: 20050606
  Transmission Date: 20060218
  Serious: No
  Sender: FDA-Public Use
  Company Number: US-GLAXOSMITHKLINE-A0561301A

PATIENT
  Age: 51 Year
  Sex: Male

DRUGS (2)
  1. COMMIT [Suspect]
     Dates: end: 20050601
  2. NICODERM CQ [Suspect]

REACTIONS (4)
  - ANXIETY [None]
  - APPLICATION SITE REACTION [None]
  - DISCOMFORT [None]
  - RETCHING [None]
